FAERS Safety Report 5310689-0 (Version None)
Quarter: 2007Q2

REPORT INFORMATION
  Report Type: 
  Country: None (occurrence: None)
  Receive Date: 20070428
  Receipt Date: 20070418
  Transmission Date: 20071010
  Serious: Yes (Other)
  Sender: FDA-Public Use
  Company Number: FR-PFIZER INC-2007031032

PATIENT
  Sex: Female

DRUGS (3)
  1. AMLOR [Suspect]
     Indication: HYPERTENSION
     Dosage: DAILY DOSE:5MG-FREQ:DAILY
     Route: 048
  2. VALSARTAN [Concomitant]
  3. BISOPROLOL FUMARATE [Concomitant]

REACTIONS (4)
  - ARTHRALGIA [None]
  - INSOMNIA [None]
  - TENDON DISORDER [None]
  - TOOTH LOSS [None]
